FAERS Safety Report 12099071 (Version 1)
Quarter: 2016Q1

REPORT INFORMATION
  Report Type: Report from Study
  Country: CO (occurrence: CO)
  Receive Date: 20160222
  Receipt Date: 20160222
  Transmission Date: 20160526
  Serious: Yes (Hospitalization)
  Sender: FDA-Public Use
  Company Number: PHHY2015CO121747

PATIENT
  Age: 84 Year
  Sex: Female
  Weight: 70 kg

DRUGS (4)
  1. AFINITOR [Suspect]
     Active Substance: EVEROLIMUS
     Indication: BONE CANCER
  2. AFINITOR [Suspect]
     Active Substance: EVEROLIMUS
     Indication: NEUROENDOCRINE TUMOUR
  3. AFINITOR [Suspect]
     Active Substance: EVEROLIMUS
     Indication: RENAL CANCER
  4. AFINITOR [Suspect]
     Active Substance: EVEROLIMUS
     Indication: BREAST CANCER
     Dosage: 10 MG, QD
     Route: 048
     Dates: start: 20150917

REACTIONS (17)
  - Constipation [Unknown]
  - Dysuria [Unknown]
  - Abdominal distension [Unknown]
  - Oliguria [Unknown]
  - Gastritis [Unknown]
  - Dyspepsia [Unknown]
  - Renal disorder [Unknown]
  - Vomiting [Unknown]
  - Decreased appetite [Unknown]
  - Product use issue [Unknown]
  - Anuria [Unknown]
  - Diarrhoea [Unknown]
  - Peripheral swelling [Unknown]
  - Drug intolerance [Unknown]
  - Generalised oedema [Unknown]
  - Abdominal pain upper [Unknown]
  - Abdominal discomfort [Unknown]

NARRATIVE: CASE EVENT DATE: 20151005
